FAERS Safety Report 10220474 (Version 4)
Quarter: 2014Q3

REPORT INFORMATION
  Report Type: Spontaneous
  Country: US (occurrence: US)
  Receive Date: 20140606
  Receipt Date: 20140717
  Transmission Date: 20150326
  Serious: Yes (Hospitalization, Other)
  Sender: FDA-Public Use
  Company Number: US-PFIZER INC-2014128305

PATIENT
  Age: 24 Year
  Sex: Female
  Weight: 83.9 kg

DRUGS (11)
  1. PRISTIQ EXTENDED RELEASE [Suspect]
     Active Substance: DESVENLAFAXINE SUCCINATE
     Indication: MAJOR DEPRESSION
     Dosage: 50 MG, 1X/DAY
     Route: 048
     Dates: start: 201402
  2. PRISTIQ EXTENDED RELEASE [Suspect]
     Active Substance: DESVENLAFAXINE SUCCINATE
     Indication: BORDERLINE PERSONALITY DISORDER
     Dosage: 750 MG, UNK
     Route: 048
     Dates: start: 20140503, end: 20140505
  3. VISTARIL [Suspect]
     Active Substance: HYDROXYZINE PAMOATE
     Dosage: UNK
  4. XANAX [Suspect]
     Active Substance: ALPRAZOLAM
     Dosage: UNK
  5. LAMICTAL [Suspect]
     Active Substance: LAMOTRIGINE
     Dosage: 300 MG, UNK
     Dates: end: 20140505
  6. XANAX [Suspect]
     Active Substance: ALPRAZOLAM
     Dosage: 7 MG, UNK
     Dates: start: 20140503, end: 20140505
  7. SEROQUEL [Suspect]
     Active Substance: QUETIAPINE FUMARATE
     Dosage: UNK
  8. SEROQUEL [Suspect]
     Active Substance: QUETIAPINE FUMARATE
     Dosage: THREE OR FOUR TABLETS OF 50 MG
     Dates: start: 20140503, end: 20140505
  9. VISTARIL [Suspect]
     Active Substance: HYDROXYZINE PAMOATE
     Dosage: 4450 MG, UNK
     Dates: start: 20140503, end: 20140505
  10. LAMICTAL [Suspect]
     Active Substance: LAMOTRIGINE
     Dosage: 3600 MG
     Dates: start: 20140503
  11. LAMICTAL [Suspect]
     Active Substance: LAMOTRIGINE
     Dosage: UNK

REACTIONS (8)
  - Suicide attempt [Recovered/Resolved]
  - Gait disturbance [Unknown]
  - Drug abuse [Unknown]
  - Intentional overdose [Unknown]
  - Suicidal ideation [Recovering/Resolving]
  - Sinus tachycardia [Unknown]
  - Serotonin syndrome [Unknown]
  - Somnolence [Unknown]

NARRATIVE: CASE EVENT DATE: 2014
